FAERS Safety Report 18570457 (Version 3)
Quarter: 2023Q1

REPORT INFORMATION
  Report Type: Spontaneous
  Country: US (occurrence: US)
  Receive Date: 20201202
  Receipt Date: 20230210
  Transmission Date: 20230418
  Serious: No
  Sender: FDA-Public Use
  Company Number: US-PFIZER INC-2020231593

PATIENT
  Age: 72 Year
  Sex: Female
  Weight: 82.55 kg

DRUGS (2)
  1. IBRANCE [Suspect]
     Active Substance: PALBOCICLIB
     Indication: Breast cancer female
     Dosage: 125 MG, CYCLIC [125 MG ONCE DAY BY MOUTH FOR 21 DAYS]
     Route: 048
     Dates: start: 20200330
  2. IBRANCE [Suspect]
     Active Substance: PALBOCICLIB
     Dosage: 125 MG

REACTIONS (2)
  - Neoplasm progression [Unknown]
  - Anxiety [Unknown]
